FAERS Safety Report 21036519 (Version 1)
Quarter: 2022Q3

REPORT INFORMATION
  Report Type: Spontaneous
  Country: US (occurrence: US)
  Receive Date: 20220702
  Receipt Date: 20220702
  Transmission Date: 20221027
  Serious: No
  Sender: FDA-Public Use
  Company Number: US-SANOFI-01163158

PATIENT
  Age: 15 Year

DRUGS (3)
  1. DUPIXENT [Suspect]
     Active Substance: DUPILUMAB
     Indication: Dermatitis atopic
     Dosage: UNK
  2. POLYETHYLENE GLYCOL [MACROGOL 3350] [Concomitant]
  3. PG [PREGABALIN] [Concomitant]

REACTIONS (1)
  - Drug effect less than expected [Unknown]
